FAERS Safety Report 23562062 (Version 1)
Quarter: 2024Q1

REPORT INFORMATION
  Report Type: Spontaneous
  Country: US (occurrence: US)
  Receive Date: 20240226
  Receipt Date: 20240226
  Transmission Date: 20240410
  Serious: No
  Sender: FDA-Public Use
  Company Number: US-AMGEN-USASP2024038341

PATIENT

DRUGS (1)
  1. MVASI [Suspect]
     Active Substance: BEVACIZUMAB-AWWB
     Indication: Product used for unknown indication
     Dosage: UNK, TOTAL DOSE: 400 MG (1 X 400 MG VIAL)
     Route: 065

REACTIONS (2)
  - Hypertension [Unknown]
  - Product contamination [Unknown]

NARRATIVE: CASE EVENT DATE: 20240216
